FAERS Safety Report 13666016 (Version 6)
Quarter: 2018Q1

REPORT INFORMATION
  Report Type: Spontaneous
  Country: US (occurrence: US)
  Receive Date: 20170619
  Receipt Date: 20180315
  Transmission Date: 20180508
  Serious: Yes (Hospitalization)
  Sender: FDA-Public Use
  Company Number: US-ACTELION-A-US2017-152470

PATIENT
  Age: 28 Year
  Sex: Female
  Weight: 58.96 kg

DRUGS (7)
  1. ADCIRCA [Concomitant]
     Active Substance: TADALAFIL
  2. VELETRI [Suspect]
     Active Substance: EPOPROSTENOL
     Dosage: 23 NG/KG, PER MIN
     Route: 042
  3. VELETRI [Suspect]
     Active Substance: EPOPROSTENOL
     Dosage: 7 NG/KG, PER MIN
     Route: 042
  4. VELETRI [Suspect]
     Active Substance: EPOPROSTENOL
     Dosage: 16 NG/KG, PER MIN
     Route: 042
  5. LETAIRIS [Concomitant]
     Active Substance: AMBRISENTAN
  6. VELETRI [Suspect]
     Active Substance: EPOPROSTENOL
     Indication: PULMONARY HYPERTENSION
     Dosage: 24 NG/KG, PER MIN
     Route: 042
  7. COUMADIN [Concomitant]
     Active Substance: WARFARIN SODIUM

REACTIONS (18)
  - Sepsis [Unknown]
  - Chest pain [Unknown]
  - Flushing [Unknown]
  - Pain of skin [Unknown]
  - Myalgia [Unknown]
  - Pruritus [Unknown]
  - Pain in jaw [Unknown]
  - Device related infection [Unknown]
  - Headache [Unknown]
  - Dermatitis contact [Unknown]
  - Nausea [Unknown]
  - Diarrhoea [Unknown]
  - Catheter site erythema [Unknown]
  - Malaise [Unknown]
  - Chest discomfort [Unknown]
  - Catheter site inflammation [Unknown]
  - Palpitations [Unknown]
  - Erythema [Unknown]
